FAERS Safety Report 4675403-0 (Version None)
Quarter: 2005Q2

REPORT INFORMATION
  Report Type: 
  Country: None (occurrence: None)
  Receive Date: 20050527
  Receipt Date: 20050222
  Transmission Date: 20051028
  Serious: No
  Sender: FDA-Public Use
  Company Number: US-BRISTOL-MYERS SQUIBB COMPANY-12871844

PATIENT
  Sex: Female

DRUGS (3)
  1. ABILIFY [Suspect]
     Indication: PSYCHIATRIC SYMPTOM
     Dosage: INITIATED AT 30 MG/DAY, INC TO 45 MG/DAY, DEC TO 30 MG/DAY.  DISCONTINUED AND RESTARTED AT 30 MG/DAY
     Route: 048
  2. GEODON [Concomitant]
  3. TRAZODONE HCL [Concomitant]
     Dosage: INITIATED AT 1 MG/DAY

REACTIONS (4)
  - AKATHISIA [None]
  - HYPERHIDROSIS [None]
  - PRESCRIBED OVERDOSE [None]
  - VERTIGO [None]
